FAERS Safety Report 8962323 (Version 1)
Quarter: 2012Q4

REPORT INFORMATION
  Report Type: Spontaneous
  Country: US (occurrence: None)
  Receive Date: 20121211
  Receipt Date: 20121211
  Transmission Date: 20130627
  Serious: No
  Sender: FDA-Public Use
  Company Number: None

PATIENT
  Age: 80 Year
  Sex: Female
  Weight: 49.9 kg

DRUGS (1)
  1. RECLAST [Suspect]
     Dates: start: 20121119

REACTIONS (6)
  - Fatigue [None]
  - Hypersomnia [None]
  - Myalgia [None]
  - Arthralgia [None]
  - Abdominal pain upper [None]
  - No reaction on previous exposure to drug [None]
